FAERS Safety Report 10491756 (Version 1)
Quarter: 2014Q4

REPORT INFORMATION
  Report Type: Spontaneous
  Country: US (occurrence: US)
  Receive Date: 20141002
  Receipt Date: 20141002
  Transmission Date: 20150528
  Serious: No
  Sender: FDA-Public Use
  Company Number: US-GLAXOSMITHKLINE-A1059031A

PATIENT
  Sex: Female

DRUGS (5)
  1. FLEXERIL [Concomitant]
     Active Substance: CYCLOBENZAPRINE HYDROCHLORIDE
  2. Z-PACK [Concomitant]
     Active Substance: AZITHROMYCIN DIHYDRATE
  3. ADVAIR HFA [Suspect]
     Active Substance: FLUTICASONE PROPIONATE\SALMETEROL XINAFOATE
     Dosage: 1PUFF TWICE PER DAY
     Route: 055
     Dates: start: 20120803
  4. GABAPENTIN. [Concomitant]
     Active Substance: GABAPENTIN
  5. ROBITUSSIN AC [Concomitant]

REACTIONS (2)
  - Nausea [Unknown]
  - Product quality issue [Unknown]
